FAERS Safety Report 9991736 (Version 2)
Quarter: 2014Q1

REPORT INFORMATION
  Report Type: Spontaneous
  Country: DE (occurrence: DE)
  Receive Date: 20140310
  Receipt Date: 20140311
  Transmission Date: 20141002
  Serious: Yes (Hospitalization)
  Sender: FDA-Public Use
  Company Number: DE-TEVA-465507GER

PATIENT
  Age: 18 Year
  Sex: Male

DRUGS (3)
  1. IBUPROFEN [Suspect]
     Indication: BACK PAIN
     Route: 048
     Dates: start: 20140125, end: 20140125
  2. IBUPROFEN [Suspect]
     Route: 048
  3. PARACETAMOL [Concomitant]
     Indication: BACK PAIN
     Route: 048

REACTIONS (2)
  - Pulmonary haemorrhage [Unknown]
  - Haemoptysis [Unknown]
